FAERS Safety Report 13501495 (Version 1)
Quarter: 2017Q2

REPORT INFORMATION
  Report Type: Report from Study
  Country: None (occurrence: HR)
  Receive Date: 20170501
  Receipt Date: 20170501
  Transmission Date: 20170830
  Serious: Yes (Death)
  Sender: FDA-Public Use
  Company Number: HR-ABBVIE-17P-216-1958333-00

PATIENT
  Age: 68 Year

DRUGS (1)
  1. VENETOCLAX [Suspect]
     Active Substance: VENETOCLAX
     Indication: CHRONIC LYMPHOCYTIC LEUKAEMIA
     Route: 048
     Dates: start: 201703, end: 201704

REACTIONS (2)
  - Cellulitis [Fatal]
  - Death [Fatal]

NARRATIVE: CASE EVENT DATE: 20170408
